FAERS Safety Report 8757711 (Version 1)
Quarter: 2012Q4

REPORT INFORMATION
  Report Type: 
  Country: GB (occurrence: GB)
  Receive Date: 20120828
  Receipt Date: 20120828
  Transmission Date: 20130627
  Serious: Yes (Hospitalization)
  Sender: FDA-Public Use
  Company Number: GB-WATSON-2012-14700

PATIENT
  Sex: Female
  Weight: 3.04 kg

DRUGS (1)
  1. DICLOFENAC SODIUM [Suspect]
     Indication: BACK PAIN
     Dosage: 75 mg, unknown
     Route: 064

REACTIONS (4)
  - Ductus arteriosus premature closure [Recovered/Resolved]
  - Hydrops foetalis [Recovered/Resolved]
  - Cardiac failure [Recovered/Resolved]
  - Maternal drugs affecting foetus [None]
